FAERS Safety Report 13499083 (Version 3)
Quarter: 2017Q2

REPORT INFORMATION
  Report Type: Spontaneous
  Country: US (occurrence: US)
  Receive Date: 20170501
  Receipt Date: 20170612
  Transmission Date: 20170830
  Serious: Yes (Death, Other)
  Sender: FDA-Public Use
  Company Number: US-MALLINCKRODT-T201603668

PATIENT
  Age: 19 Year
  Sex: Male

DRUGS (41)
  1. MELATONIN [Concomitant]
     Active Substance: MELATONIN
     Dosage: 3 MG
     Route: 048
  2. BENEPROTEIN [Concomitant]
     Active Substance: DIETARY SUPPLEMENT
  3. CALMOSEPTINE [Concomitant]
     Active Substance: MENTHOL\ZINC OXIDE
  4. ZINC. [Concomitant]
     Active Substance: ZINC
  5. HUMALOG [Concomitant]
     Active Substance: INSULIN LISPRO
  6. SENNOSIDES A+B [Concomitant]
     Active Substance: SENNOSIDES A AND B
  7. POLYETHYLENE GLYCOL 3350. [Concomitant]
     Active Substance: POLYETHYLENE GLYCOL 3350
  8. VERSED [Concomitant]
     Active Substance: MIDAZOLAM HYDROCHLORIDE
  9. BISAC EVAC [Concomitant]
     Dosage: 10 MG
     Route: 054
  10. CHLOROTHIAZIDE W/POTASSIUM CHLORIDE [Concomitant]
  11. GABLOFEN [Suspect]
     Active Substance: BACLOFEN
     Indication: CEREBRAL PALSY
  12. ROBINUL [Concomitant]
     Active Substance: GLYCOPYRROLATE
  13. FOLIC ACID. [Concomitant]
     Active Substance: FOLIC ACID
  14. TINACTIN [Concomitant]
     Active Substance: TOLNAFTATE
  15. ROCURONIUM [Concomitant]
     Active Substance: ROCURONIUM BROMIDE
  16. ENOXAPARIN [Concomitant]
     Active Substance: ENOXAPARIN
  17. VANCOMYCIN [Concomitant]
     Active Substance: VANCOMYCIN
  18. PEDIALYTE [Concomitant]
     Active Substance: POTASSIUM CITRATE\SODIUM CITRATE\ZINC
  19. FUROSEMIDE. [Concomitant]
     Active Substance: FUROSEMIDE
  20. BUDESONIDE. [Concomitant]
     Active Substance: BUDESONIDE
  21. AMOXICILLIN. [Concomitant]
     Active Substance: AMOXICILLIN
  22. ONFI [Concomitant]
     Active Substance: CLOBAZAM
  23. VALPROIC ACID. [Concomitant]
     Active Substance: VALPROIC ACID
  24. FLOVENT [Concomitant]
     Active Substance: FLUTICASONE PROPIONATE
  25. ELAVIL [Concomitant]
     Active Substance: AMITRIPTYLINE HYDROCHLORIDE
  26. SIMETHICONE (DIMETHICONE) [Concomitant]
     Active Substance: DIMETHICONE
     Dosage: 40 MG/0.6ML
  27. MOTRIN [Concomitant]
     Active Substance: IBUPROFEN
     Dosage: 200 MG
  28. SALINE [Concomitant]
     Active Substance: SODIUM CHLORIDE
     Dosage: 9%
  29. PROVENTIL [Concomitant]
     Active Substance: ALBUTEROL
     Dosage: 2.5MG/3ML, 0.083%
  30. GABLOFEN [Suspect]
     Active Substance: BACLOFEN
     Indication: MUSCLE SPASTICITY
     Dosage: 600 ?G, QD
     Route: 037
  31. VENTOLIN [Concomitant]
     Active Substance: ALBUTEROL SULFATE
     Dosage: 2.5MG/3ML, 0.083%
  32. ARISTOCORT [Concomitant]
     Active Substance: TRIAMCINOLONE DIACETATE
  33. INSULIN DETEMIR DCI [Concomitant]
     Dosage: 100 UNIT/ML
  34. DESITIN [Concomitant]
     Active Substance: ZINC OXIDE
     Dosage: OINTMENT
  35. AMPICILLIN AND SULBACTAM [Concomitant]
     Active Substance: AMPICILLIN SODIUM\SULBACTAM SODIUM
  36. METHYLPREDNISOLONE SODIUM SUCCINATE. [Concomitant]
     Active Substance: METHYLPREDNISOLONE SODIUM SUCCINATE
  37. EPINEPHRINE. [Concomitant]
     Active Substance: EPINEPHRINE
  38. VALIUM [Concomitant]
     Active Substance: DIAZEPAM
  39. PERIACTIN [Concomitant]
     Active Substance: CYPROHEPTADINE HYDROCHLORIDE
  40. ZANTAC [Concomitant]
     Active Substance: RANITIDINE HYDROCHLORIDE
     Dosage: 150 MG
  41. METFORMIN [Concomitant]
     Active Substance: METFORMIN HYDROCHLORIDE
     Dosage: 500 MG

REACTIONS (33)
  - Pyrexia [Unknown]
  - Abdominal distension [Unknown]
  - Hypercapnia [Unknown]
  - Abnormal behaviour [Unknown]
  - Urine output decreased [Unknown]
  - Seizure [Unknown]
  - Pain [Unknown]
  - Hypertonia [Unknown]
  - Hyperglycaemia [Unknown]
  - Ocular hyperaemia [Unknown]
  - Withdrawal syndrome [Unknown]
  - Viral infection [Fatal]
  - Pneumonia [Unknown]
  - Ear infection [Unknown]
  - Cough [Unknown]
  - Pulmonary congestion [Unknown]
  - Secretion discharge [Unknown]
  - Hypotension [Unknown]
  - Device issue [Unknown]
  - Clonus [Unknown]
  - Constipation [Unknown]
  - Acute respiratory failure [Unknown]
  - Restlessness [Unknown]
  - Depressed level of consciousness [Unknown]
  - Muscle spasms [Unknown]
  - Tachycardia [Unknown]
  - Hyperhidrosis [Unknown]
  - Muscle rigidity [Unknown]
  - Vomiting [Unknown]
  - Intestinal obstruction [Fatal]
  - Discomfort [Unknown]
  - Respiratory acidosis [Unknown]
  - Fatigue [Unknown]

NARRATIVE: CASE EVENT DATE: 2016
